FAERS Safety Report 23271792 (Version 1)
Quarter: 2023Q4

REPORT INFORMATION
  Report Type: Spontaneous
  Country: CN (occurrence: CN)
  Receive Date: 20231207
  Receipt Date: 20231207
  Transmission Date: 20240109
  Serious: Yes (Other)
  Sender: FDA-Public Use
  Company Number: CN-PFIZER INC-PV202300192844

PATIENT
  Age: 79 Year
  Sex: Male

DRUGS (14)
  1. FLUCONAZOLE [Interacting]
     Active Substance: FLUCONAZOLE
     Indication: Candida infection
     Dosage: 200 MG, 1X/DAY
     Route: 048
  2. WARFARIN [Interacting]
     Active Substance: WARFARIN
     Dosage: 2.5 MG, 1X/DAY
     Route: 048
  3. WARFARIN [Interacting]
     Active Substance: WARFARIN
     Dosage: 3.625 MG
     Route: 048
  4. WARFARIN [Interacting]
     Active Substance: WARFARIN
     Dosage: 1.25 MG, 1X/DAY
     Route: 048
  5. RIFAMPIN [Interacting]
     Active Substance: RIFAMPIN
     Dosage: 0.45 G, 1X/DAY
     Route: 048
  6. PIPERACILLIN\SULBACTAM [Concomitant]
     Active Substance: PIPERACILLIN\SULBACTAM
     Indication: Infection
     Dosage: 4.5 G, 2X/DAY
     Route: 041
  7. TINIDAZOLE [Concomitant]
     Active Substance: TINIDAZOLE
     Dosage: 0.8 G, 1X/DAY
     Route: 041
  8. LINEZOLID [Concomitant]
     Active Substance: LINEZOLID
     Indication: Infection
     Dosage: 0.6 G, 2X/DAY
     Route: 041
  9. MOXIFLOXACIN [Concomitant]
     Active Substance: MOXIFLOXACIN
     Dosage: 400 MG, 1X/DAY
     Route: 041
  10. ALBUMIN HUMAN [Concomitant]
     Active Substance: ALBUMIN HUMAN
     Dosage: UNK
  11. INSULIN NOS [Concomitant]
     Active Substance: INSULIN NOS
     Dosage: UNK
  12. DESLANOSIDE [Concomitant]
     Active Substance: DESLANOSIDE
     Dosage: 0.2 MG
     Route: 042
  13. METOPROLOL [Concomitant]
     Active Substance: METOPROLOL
     Dosage: 25 MG, 2X/DAY
     Route: 048
  14. UNSPECIFIED INGREDIENT [Concomitant]
     Active Substance: UNSPECIFIED INGREDIENT
     Indication: Anticoagulant therapy
     Dosage: 4100 IU, 1X/DAY
     Route: 058

REACTIONS (2)
  - Drug interaction [Recovering/Resolving]
  - International normalised ratio increased [Recovering/Resolving]
